FAERS Safety Report 6727936-0 (Version None)
Quarter: 2010Q2

REPORT INFORMATION
  Report Type: 
  Country: None (occurrence: None)
  Receive Date: 20100517
  Receipt Date: 20100504
  Transmission Date: 20101027
  Serious: Yes (Life-Threatening, Hospitalization)
  Sender: FDA-Public Use
  Company Number: US-JNJFOC-20091201931

PATIENT
  Sex: Male
  Weight: 102.51 kg

DRUGS (4)
  1. PREZISTA [Suspect]
     Indication: HIV INFECTION
     Route: 048
     Dates: start: 20091121
  2. PREZISTA [Suspect]
     Route: 048
     Dates: start: 20091121
  3. INTELENCE [Concomitant]
     Indication: HIV INFECTION
     Route: 048
  4. EPZICOM [Concomitant]
     Indication: HIV INFECTION

REACTIONS (9)
  - ACCIDENTAL OVERDOSE [None]
  - CHRONIC OBSTRUCTIVE PULMONARY DISEASE [None]
  - DIARRHOEA [None]
  - DRUG DISPENSING ERROR [None]
  - HYPERTENSION [None]
  - HYPOVOLAEMIC SHOCK [None]
  - PANCYTOPENIA [None]
  - RENAL FAILURE ACUTE [None]
  - TOXIC ENCEPHALOPATHY [None]
